FAERS Safety Report 5710320-6 (Version None)
Quarter: 2008Q2

REPORT INFORMATION
  Report Type: 
  Country: None (occurrence: None)
  Receive Date: 20080418
  Receipt Date: 20080407
  Transmission Date: 20081010
  Serious: Yes (Other)
  Sender: FDA-Public Use
  Company Number: US-PFIZER INC-2008030603

PATIENT
  Sex: Female
  Weight: 60.3 kg

DRUGS (13)
  1. NEURONTIN [Suspect]
     Indication: TRIGEMINAL NEURALGIA
     Route: 048
  2. CELEBREX [Suspect]
  3. BENADRYL [Suspect]
  4. HYDROCODONE BITARTRATE [Suspect]
  5. ALL OTHER THERAPEUTIC PRODUCTS [Concomitant]
     Indication: THYROID DISORDER
  6. VALIUM [Concomitant]
  7. ESTROGENIC SUBSTANCE [Concomitant]
  8. CRESTOR [Concomitant]
  9. FLONASE [Concomitant]
  10. ASPIRIN [Concomitant]
  11. AVELOX [Concomitant]
  12. HYPOTEARS DDPF [Concomitant]
  13. HYDROCORTISONE [Concomitant]

REACTIONS (6)
  - CHEST DISCOMFORT [None]
  - CONSTIPATION [None]
  - DYSPHAGIA [None]
  - FATIGUE [None]
  - IMPAIRED DRIVING ABILITY [None]
  - MUSCULOSKELETAL STIFFNESS [None]
